FAERS Safety Report 5451992-3 (Version None)
Quarter: 2007Q3

REPORT INFORMATION
  Report Type: 
  Country: None (occurrence: None)
  Receive Date: 20070912
  Receipt Date: 20070831
  Transmission Date: 20080115
  Serious: Yes (Hospitalization)
  Sender: FDA-Public Use
  Company Number: GXKR2007SA07598

PATIENT
  Age: 30 Year
  Sex: Female

DRUGS (1)
  1. CIPROFLOXACIN [Suspect]
     Indication: URINARY TRACT INFECTION
     Dosage: 250 MG, BID, ORAL
     Route: 048

REACTIONS (5)
  - ABNORMAL BEHAVIOUR [None]
  - CONFUSIONAL STATE [None]
  - DISORIENTATION [None]
  - ENCEPHALOPATHY [None]
  - PSYCHOMOTOR HYPERACTIVITY [None]
